FAERS Safety Report 10149717 (Version 2)
Quarter: 2014Q2

REPORT INFORMATION
  Report Type: Report from Study
  Country: AU (occurrence: AU)
  Receive Date: 20140502
  Receipt Date: 20140521
  Transmission Date: 20141212
  Serious: Yes (Death, Other)
  Sender: FDA-Public Use
  Company Number: PHHY2014AU052728

PATIENT
  Age: 52 Year
  Sex: Female
  Weight: 55 kg

DRUGS (10)
  1. CLOZARIL [Suspect]
     Indication: SCHIZOPHRENIA
     Dosage: 200 MG, NOCTE
     Dates: start: 20031126
  2. CLOZARIL [Suspect]
     Dosage: 400 MG, NOCTE
     Route: 048
  3. SERTRALINE [Concomitant]
     Dosage: 100 MG, MANE
  4. PANTOPRAZOLE [Concomitant]
     Dosage: 40 MG, MANE
  5. SERETIDE [Concomitant]
     Dosage: 2 DF, BID (250/25)
  6. SPIRIVA [Concomitant]
     Dosage: 18 UG, (01 MANE)
  7. SALBUTAMOL [Concomitant]
     Dosage: 2 DF, PRN (2 PUFF)
  8. CICLESONIDE [Concomitant]
     Dosage: 2 DF, BID
  9. FERROUS SULPHATE [Concomitant]
     Dosage: 1 DF, MANE
  10. SENOKOT                                 /UNK/ [Concomitant]
     Dosage: 2, BID

REACTIONS (2)
  - Lung neoplasm malignant [Fatal]
  - Weight decreased [Unknown]
